FAERS Safety Report 23546533 (Version 1)
Quarter: 2024Q1

REPORT INFORMATION
  Report Type: Report from Study
  Country: US (occurrence: US)
  Receive Date: 20240221
  Receipt Date: 20240221
  Transmission Date: 20240409
  Serious: Yes (Other)
  Sender: FDA-Public Use
  Company Number: US-ABBVIE-5645444

PATIENT
  Sex: Female

DRUGS (1)
  1. CREON [Suspect]
     Active Substance: PANCRELIPASE AMYLASE\PANCRELIPASE LIPASE\PANCRELIPASE PROTEASE
     Indication: Product used for unknown indication
     Dosage: FORM STRENGTH: 36000 UNIT?FREQUENCY: 2 CAPSULES EACH MEAL 1 CAPSULE EACH SNACK
     Route: 048
     Dates: start: 201905

REACTIONS (3)
  - Neoplasm malignant [Unknown]
  - Chest pain [Unknown]
  - Unevaluable event [Unknown]
